FAERS Safety Report 23586791 (Version 2)
Quarter: 2024Q1

REPORT INFORMATION
  Report Type: Spontaneous
  Country: ES (occurrence: ES)
  Receive Date: 20240301
  Receipt Date: 20240318
  Transmission Date: 20240410
  Serious: Yes (Death, Other)
  Sender: FDA-Public Use
  Company Number: ES-INCYTE CORPORATION-2024IN002078

PATIENT

DRUGS (7)
  1. TAFASITAMAB [Suspect]
     Active Substance: TAFASITAMAB
     Indication: Product used for unknown indication
     Dosage: UNK
     Route: 065
  2. TAFASITAMAB [Suspect]
     Active Substance: TAFASITAMAB
     Dosage: 9TH TREATMENT CYCLE
     Route: 065
     Dates: start: 202205
  3. LENALIDOMIDE [Suspect]
     Active Substance: LENALIDOMIDE
     Indication: Product used for unknown indication
     Dosage: UNK
     Route: 065
  4. LENALIDOMIDE [Suspect]
     Active Substance: LENALIDOMIDE
     Dosage: 9TH TREATMENT CYCLE
     Route: 065
     Dates: start: 202205
  5. LENALIDOMIDE [Suspect]
     Active Substance: LENALIDOMIDE
     Dosage: DOSE DECREASED AFTER CYCLE 10
     Route: 065
  6. LENALIDOMIDE [Suspect]
     Active Substance: LENALIDOMIDE
     Dosage: UNK
     Route: 065
  7. LENALIDOMIDE [Suspect]
     Active Substance: LENALIDOMIDE
     Dosage: DOSE DECREASED AFTER CYCLE 10
     Route: 065

REACTIONS (5)
  - Death [Fatal]
  - Pancytopenia [Unknown]
  - Febrile neutropenia [Unknown]
  - Pneumonia [Unknown]
  - COVID-19 [Unknown]
